FAERS Safety Report 23085292 (Version 1)
Quarter: 2023Q4

REPORT INFORMATION
  Report Type: Report from Study
  Country: US (occurrence: US)
  Receive Date: 20231019
  Receipt Date: 20231019
  Transmission Date: 20240110
  Serious: Yes (Other)
  Sender: FDA-Public Use
  Company Number: US-ELI_LILLY_AND_COMPANY-US202310008686

PATIENT
  Age: 63 Year
  Sex: Male

DRUGS (8)
  1. MOUNJARO [Interacting]
     Active Substance: TIRZEPATIDE
     Indication: Weight decreased
     Dosage: 2.5 MG, WEEKLY (1/W)
     Route: 065
  2. MOUNJARO [Interacting]
     Active Substance: TIRZEPATIDE
     Dosage: 12.5 MG, WEEKLY (1/W)
     Route: 065
  3. SACUBITRIL\VALSARTAN [Interacting]
     Active Substance: SACUBITRIL\VALSARTAN
     Indication: Left ventricular failure
     Dosage: 97/103 MG, BID
     Route: 065
  4. SACUBITRIL\VALSARTAN [Interacting]
     Active Substance: SACUBITRIL\VALSARTAN
     Dosage: 49/51 MG, BID
     Route: 065
  5. CARVEDILOL [Interacting]
     Active Substance: CARVEDILOL
     Indication: Left ventricular failure
     Dosage: 50 MG, BID
     Route: 065
  6. CARVEDILOL [Interacting]
     Active Substance: CARVEDILOL
     Dosage: 25 MG, BID
     Route: 065
  7. CARVEDILOL [Interacting]
     Active Substance: CARVEDILOL
     Dosage: 12.5 MG, BID
     Route: 065
  8. SPIRONOLACTONE [Interacting]
     Active Substance: SPIRONOLACTONE
     Indication: Left ventricular failure
     Dosage: 25 MG, DAILY
     Route: 065

REACTIONS (8)
  - Orthostatic hypotension [Recovering/Resolving]
  - Blood pressure decreased [Recovered/Resolved]
  - Renal ischaemia [Unknown]
  - Presyncope [Unknown]
  - Blood creatinine increased [Recovered/Resolved]
  - Heart rate increased [Unknown]
  - Drug interaction [Unknown]
  - Off label use [Unknown]
